FAERS Safety Report 25277740 (Version 1)
Quarter: 2025Q2

REPORT INFORMATION
  Report Type: Spontaneous
  Country: US (occurrence: US)
  Receive Date: 20250507
  Receipt Date: 20250507
  Transmission Date: 20250717
  Serious: Yes (Other)
  Sender: MYLAN
  Company Number: US-MYLANLABS-2025M1038381

PATIENT
  Age: 53 Year
  Sex: Female

DRUGS (20)
  1. METHOTREXATE [Suspect]
     Active Substance: METHOTREXATE
     Indication: Central nervous system lymphoma
     Dosage: 5600 MILLIGRAM/SQ. METER, 28D CYCLE (28-DAY CYCLES; ON DAY 1 AND DAY 15)
  2. METHOTREXATE [Suspect]
     Active Substance: METHOTREXATE
     Dosage: 5600 MILLIGRAM/SQ. METER, 28D CYCLE (28-DAY CYCLES; ON DAY 1 AND DAY 15)
  3. METHOTREXATE [Suspect]
     Active Substance: METHOTREXATE
     Dosage: 5600 MILLIGRAM/SQ. METER, 28D CYCLE (28-DAY CYCLES; ON DAY 1 AND DAY 15)
     Route: 042
  4. METHOTREXATE [Suspect]
     Active Substance: METHOTREXATE
     Dosage: 5600 MILLIGRAM/SQ. METER, 28D CYCLE (28-DAY CYCLES; ON DAY 1 AND DAY 15)
     Route: 042
  5. METHOTREXATE [Suspect]
     Active Substance: METHOTREXATE
  6. METHOTREXATE [Suspect]
     Active Substance: METHOTREXATE
  7. METHOTREXATE [Suspect]
     Active Substance: METHOTREXATE
     Route: 042
  8. METHOTREXATE [Suspect]
     Active Substance: METHOTREXATE
     Route: 042
  9. LEUCOVORIN [Concomitant]
     Active Substance: LEUCOVORIN\LEUCOVORIN CALCIUM
     Indication: Product used for unknown indication
  10. LEUCOVORIN [Concomitant]
     Active Substance: LEUCOVORIN\LEUCOVORIN CALCIUM
     Route: 065
  11. LEUCOVORIN [Concomitant]
     Active Substance: LEUCOVORIN\LEUCOVORIN CALCIUM
     Route: 065
  12. LEUCOVORIN [Concomitant]
     Active Substance: LEUCOVORIN\LEUCOVORIN CALCIUM
  13. RITUXIMAB [Concomitant]
     Active Substance: RITUXIMAB
     Indication: Central nervous system lymphoma
     Dosage: 375 MILLIGRAM/SQ. METER, 28D CYCLE (ON DAY 1 IN 28-DAY CYCLES)
  14. RITUXIMAB [Concomitant]
     Active Substance: RITUXIMAB
     Dosage: 375 MILLIGRAM/SQ. METER, 28D CYCLE (ON DAY 1 IN 28-DAY CYCLES)
     Route: 042
  15. RITUXIMAB [Concomitant]
     Active Substance: RITUXIMAB
     Dosage: 375 MILLIGRAM/SQ. METER, 28D CYCLE (ON DAY 1 IN 28-DAY CYCLES)
     Route: 042
  16. RITUXIMAB [Concomitant]
     Active Substance: RITUXIMAB
     Dosage: 375 MILLIGRAM/SQ. METER, 28D CYCLE (ON DAY 1 IN 28-DAY CYCLES)
  17. TEMOZOLOMIDE [Concomitant]
     Active Substance: TEMOZOLOMIDE
     Indication: Central nervous system lymphoma
     Dosage: 150 MILLIGRAM/SQ. METER, 28D CYCLE {(DAYS 1?5) IN 28-DAY CYCLES}
  18. TEMOZOLOMIDE [Concomitant]
     Active Substance: TEMOZOLOMIDE
     Dosage: 150 MILLIGRAM/SQ. METER, 28D CYCLE {(DAYS 1?5) IN 28-DAY CYCLES}
     Route: 048
  19. TEMOZOLOMIDE [Concomitant]
     Active Substance: TEMOZOLOMIDE
     Dosage: 150 MILLIGRAM/SQ. METER, 28D CYCLE {(DAYS 1?5) IN 28-DAY CYCLES}
     Route: 048
  20. TEMOZOLOMIDE [Concomitant]
     Active Substance: TEMOZOLOMIDE
     Dosage: 150 MILLIGRAM/SQ. METER, 28D CYCLE {(DAYS 1?5) IN 28-DAY CYCLES}

REACTIONS (1)
  - Neuropathy peripheral [Recovered/Resolved]
